FAERS Safety Report 22787691 (Version 11)
Quarter: 2024Q2

REPORT INFORMATION
  Report Type: Spontaneous
  Country: US (occurrence: US)
  Receive Date: 20230804
  Receipt Date: 20240530
  Transmission Date: 20240716
  Serious: Yes (Other)
  Sender: FDA-Public Use
  Company Number: US-PFIZER INC-202300265788

PATIENT
  Age: 74 Year
  Sex: Female
  Weight: 53.52 kg

DRUGS (6)
  1. ESTRING [Suspect]
     Active Substance: ESTRADIOL
     Indication: Urinary incontinence
     Dosage: 2 MG, EVERY 3 MONTHS (ONCE EVERY 3 MONTHS)
     Route: 067
  2. ESTRING [Suspect]
     Active Substance: ESTRADIOL
     Indication: Hormone replacement therapy
     Dosage: UNK
     Route: 067
     Dates: start: 202307
  3. ESTRING [Suspect]
     Active Substance: ESTRADIOL
     Indication: Oestrogen replacement therapy
  4. ESTRING [Suspect]
     Active Substance: ESTRADIOL
     Indication: Bone density abnormal
  5. REMERON [Concomitant]
     Active Substance: MIRTAZAPINE
     Indication: Major depression
     Dosage: 52.5 MG (I TAKE 52.5 MG AT NIGHT OF THE REMERON)
     Dates: start: 1991
  6. LORAZEPAM [Concomitant]
     Active Substance: LORAZEPAM
     Indication: Sleep disorder
     Dosage: 0.5 MG (I TAKE 0.5 MG A DAY OF LORAZEPAM SO VERY LOW DOSE)
     Dates: start: 2003

REACTIONS (4)
  - Vulvovaginal pain [Recovered/Resolved]
  - Vulvovaginal discomfort [Recovered/Resolved]
  - Contraindicated product administered [Unknown]
  - Therapeutic response unexpected [Unknown]

NARRATIVE: CASE EVENT DATE: 20230714
